FAERS Safety Report 18963726 (Version 1)
Quarter: 2021Q1

REPORT INFORMATION
  Report Type: Spontaneous
  Country: IS (occurrence: IS)
  Receive Date: 20210303
  Receipt Date: 20210303
  Transmission Date: 20210420
  Serious: Yes (Hospitalization, Disabling)
  Sender: FDA-Public Use
  Company Number: IS-SAMSUNG BIOEPIS-SB-2021-04772

PATIENT
  Age: 64 Year
  Sex: Male
  Weight: 103 kg

DRUGS (6)
  1. FLIXABI [Suspect]
     Active Substance: INFLIXIMAB
     Indication: RHEUMATIC DISORDER
     Dosage: UNKNOWN
     Route: 065
     Dates: start: 20200930, end: 20200930
  2. FLIXABI [Suspect]
     Active Substance: INFLIXIMAB
     Indication: PSORIASIS
  3. NOVORAPID [Concomitant]
     Active Substance: INSULIN ASPART
     Indication: PRODUCT USED FOR UNKNOWN INDICATION
     Dosage: UNKNOWN, FLEX PEN 100 U/ML
     Route: 065
     Dates: start: 20201001
  4. METOPROLOL. [Concomitant]
     Active Substance: METOPROLOL
     Indication: PRODUCT USED FOR UNKNOWN INDICATION
     Dosage: UNKNOWN, PROLONGED RELEASE TABLET
     Route: 065
     Dates: start: 20201001
  5. ATACOR [Concomitant]
     Active Substance: ATORVASTATIN CALCIUM
     Indication: PRODUCT USED FOR UNKNOWN INDICATION
     Dosage: UNKNOWN, FILM COATED TABLET
     Route: 065
     Dates: start: 20101001
  6. ELIQUIS [Concomitant]
     Active Substance: APIXABAN
     Indication: PRODUCT USED FOR UNKNOWN INDICATION
     Dosage: UNKNOWN, FILM COATED TABLET
     Route: 065
     Dates: start: 20200901

REACTIONS (3)
  - Sight disability [Not Recovered/Not Resolved]
  - Herpes zoster [Unknown]
  - Product use in unapproved indication [Unknown]

NARRATIVE: CASE EVENT DATE: 20201001
